FAERS Safety Report 19806443 (Version 1)
Quarter: 2021Q3

REPORT INFORMATION
  Report Type: Spontaneous
  Country: US (occurrence: US)
  Receive Date: 20210909
  Receipt Date: 20210909
  Transmission Date: 20211014
  Serious: No
  Sender: FDA-Public Use
  Company Number: US-PRINSTON PHARMACEUTICAL INC.-2021PRN00086

PATIENT
  Sex: Male
  Weight: 77.1 kg

DRUGS (9)
  1. VORICONAZOLE. [Suspect]
     Active Substance: VORICONAZOLE
     Indication: BRONCHOPULMONARY ASPERGILLOSIS ALLERGIC
     Dosage: 200 MG
     Route: 048
     Dates: start: 202011
  2. LATANOPROST. [Concomitant]
     Active Substance: LATANOPROST
  3. ADVAIR HFA [Concomitant]
     Active Substance: FLUTICASONE PROPIONATE\SALMETEROL XINAFOATE
  4. FLUOXETINE [Concomitant]
     Active Substance: FLUOXETINE HYDROCHLORIDE
  5. UNSPECIFIED VITAMINS [Concomitant]
     Active Substance: VITAMINS
  6. BABY ASPIRIN [Concomitant]
     Active Substance: ASPIRIN
  7. SPIRONOLACTONE. [Concomitant]
     Active Substance: SPIRONOLACTONE
  8. SIMVASTATIN. [Concomitant]
     Active Substance: SIMVASTATIN
  9. PROAIR HFA [Concomitant]
     Active Substance: ALBUTEROL SULFATE

REACTIONS (1)
  - Blood immunoglobulin E increased [Recovering/Resolving]
